FAERS Safety Report 16224375 (Version 1)
Quarter: 2019Q2

REPORT INFORMATION
  Report Type: Report from Study
  Country: ES (occurrence: ES)
  Receive Date: 20190422
  Receipt Date: 20190422
  Transmission Date: 20190711
  Serious: Yes (Hospitalization)
  Sender: FDA-Public Use
  Company Number: ES-PFIZER INC-2019163568

PATIENT
  Age: 52 Year
  Sex: Female

DRUGS (4)
  1. GABAPENTIN. [Suspect]
     Active Substance: GABAPENTIN
     Dosage: 7.2 G, SINGLE
     Route: 048
     Dates: start: 20181209, end: 20181209
  2. ZALDIAR [Interacting]
     Active Substance: ACETAMINOPHEN\TRAMADOL HYDROCHLORIDE
     Dosage: 632.5 MG, SINGLE
     Route: 048
     Dates: start: 20181209, end: 20181209
  3. TRYPTIZOL [Interacting]
     Active Substance: AMITRIPTYLINE HYDROCHLORIDE
     Dosage: 2.77 G, SINGLE
     Route: 048
     Dates: start: 20181209, end: 20181209
  4. LORAZEPAM. [Interacting]
     Active Substance: LORAZEPAM
     Dosage: 40 MG, EVERY 3 MONTHS (DOSAGE TEXT: 40ML/ 1 QUARTER)
     Route: 048
     Dates: start: 20181209, end: 20181209

REACTIONS (4)
  - Depressed level of consciousness [Recovered/Resolved]
  - Drug interaction [Recovered/Resolved]
  - Intentional overdose [Recovered/Resolved]
  - Suicide attempt [Recovered/Resolved]

NARRATIVE: CASE EVENT DATE: 20181209
